FAERS Safety Report 24804277 (Version 5)
Quarter: 2025Q2

REPORT INFORMATION
  Report Type: Report from Study
  Country: US (occurrence: US)
  Receive Date: 20250103
  Receipt Date: 20250509
  Transmission Date: 20250716
  Serious: Yes (Death, Life-Threatening, Hospitalization)
  Sender: EISAI
  Company Number: US-Eisai-EC-2024-181655

PATIENT
  Age: 57 Year
  Sex: Female

DRUGS (3)
  1. LENVATINIB [Suspect]
     Active Substance: LENVATINIB
     Indication: Thyroid cancer
  2. LENVATINIB [Suspect]
     Active Substance: LENVATINIB
     Dates: start: 20241230
  3. PEMBROLIZUMAB [Suspect]
     Active Substance: PEMBROLIZUMAB
     Indication: Thyroid cancer

REACTIONS (4)
  - Cardiac arrest [Fatal]
  - Tracheal inflammation [Recovered/Resolved]
  - Respiratory disorder [Recovered/Resolved]
  - Pneumonia [Unknown]

NARRATIVE: CASE EVENT DATE: 20241225
